FAERS Safety Report 18391837 (Version 4)
Quarter: 2021Q4

REPORT INFORMATION
  Report Type: Report from Study
  Country: CN (occurrence: CN)
  Receive Date: 20201016
  Receipt Date: 20211126
  Transmission Date: 20220303
  Serious: Yes (Hospitalization, Other)
  Sender: FDA-Public Use
  Company Number: None

PATIENT
  Age: 37 Year
  Sex: Male
  Weight: 80 kg

DRUGS (27)
  1. ENTRESTO [Suspect]
     Active Substance: SACUBITRIL\VALSARTAN
     Indication: Cardiac failure chronic
     Dosage: 100 MG, BID
     Route: 048
     Dates: start: 20200728, end: 20200929
  2. ENTRESTO [Suspect]
     Active Substance: SACUBITRIL\VALSARTAN
     Dosage: 50 MG, BID
     Route: 048
     Dates: start: 20201004, end: 20201005
  3. ENTRESTO [Suspect]
     Active Substance: SACUBITRIL\VALSARTAN
     Dosage: 100 MG, BID
     Route: 048
     Dates: start: 20201005
  4. VOTALIN [Suspect]
     Active Substance: DICLOFENAC SODIUM
     Indication: Product used for unknown indication
     Dosage: UNK
     Route: 048
     Dates: start: 20200930, end: 20200930
  5. METOPROLOL SUCCINATE [Concomitant]
     Active Substance: METOPROLOL SUCCINATE
     Indication: Cardiac failure
     Dosage: 47.5 MG, BID
     Route: 065
     Dates: start: 20200930, end: 20201001
  6. METOPROLOL SUCCINATE [Concomitant]
     Active Substance: METOPROLOL SUCCINATE
     Indication: Coronary artery disease
     Dosage: 71.25 MG, BID
     Route: 065
     Dates: start: 20201001, end: 20201002
  7. METOPROLOL SUCCINATE [Concomitant]
     Active Substance: METOPROLOL SUCCINATE
     Dosage: 95 MG, BID
     Route: 065
     Dates: start: 20201002
  8. ENALAPRIL MALEATE [Concomitant]
     Active Substance: ENALAPRIL MALEATE
     Indication: Cardiac failure
     Dosage: 10 MG, QD
     Route: 065
     Dates: start: 20200930, end: 20201002
  9. ATORVASTATIN CALCIUM [Concomitant]
     Active Substance: ATORVASTATIN CALCIUM
     Indication: Coronary artery disease
     Dosage: 40 MG, QD
     Route: 065
     Dates: start: 20200930
  10. ENOXAPARIN SODIUM [Concomitant]
     Active Substance: ENOXAPARIN SODIUM
     Indication: Coronary artery disease
     Dosage: 4000 IU, 1/12 HOUR
     Route: 065
     Dates: start: 20200930, end: 20201002
  11. LANSOPRAZOLE [Concomitant]
     Active Substance: LANSOPRAZOLE
     Indication: Prophylaxis
     Dosage: 15 MG, BID
     Route: 065
     Dates: start: 20200930, end: 20201006
  12. LANSOPRAZOLE [Concomitant]
     Active Substance: LANSOPRAZOLE
     Dosage: 30 MG, QD
     Route: 065
     Dates: start: 20201006
  13. REBAMIPIDE [Concomitant]
     Active Substance: REBAMIPIDE
     Indication: Prophylaxis
     Dosage: 0.1 G, TID
     Route: 065
     Dates: start: 20200930, end: 20201006
  14. ALPRAZOLAM [Concomitant]
     Active Substance: ALPRAZOLAM
     Indication: Product used for unknown indication
     Dosage: 0.4 MG, BEFORE SLEEP
     Route: 065
     Dates: start: 20200930
  15. EZETIMIBE [Concomitant]
     Active Substance: EZETIMIBE
     Indication: Coronary artery disease
     Dosage: 10 MG, QD
     Route: 065
     Dates: start: 20200930
  16. TICAGRELOR [Concomitant]
     Active Substance: TICAGRELOR
     Indication: Coronary artery disease
     Dosage: 90 MG, BID
     Route: 065
     Dates: start: 20200930
  17. RIVAROXABAN [Concomitant]
     Active Substance: RIVAROXABAN
     Indication: Product used for unknown indication
     Dosage: 15 MG, QD
     Route: 065
     Dates: start: 20200930, end: 20200930
  18. DIAZEPAM [Concomitant]
     Active Substance: DIAZEPAM
     Indication: Gout
     Dosage: 25 MG, TID
     Route: 065
     Dates: start: 20201001, end: 20201003
  19. FLURBIPROFEN [Concomitant]
     Active Substance: FLURBIPROFEN
     Indication: Gout
     Dosage: 40 MG, QD
     Route: 065
     Dates: start: 20201001, end: 20201001
  20. LOXOPROFEN SODIUM [Concomitant]
     Active Substance: LOXOPROFEN SODIUM
     Indication: Gout
     Dosage: 60 MG, QD
     Route: 065
     Dates: start: 20201002, end: 20201002
  21. LOXOPROFEN SODIUM [Concomitant]
     Active Substance: LOXOPROFEN SODIUM
     Dosage: 60 MG, QD
     Route: 065
     Dates: start: 20201003, end: 20201003
  22. LOXOPROFEN SODIUM [Concomitant]
     Active Substance: LOXOPROFEN SODIUM
     Dosage: 60 MG, QD
     Route: 065
     Dates: start: 20201004, end: 20201004
  23. LOXOPROFEN SODIUM [Concomitant]
     Active Substance: LOXOPROFEN SODIUM
     Dosage: 60 MG, BID
     Route: 065
     Dates: start: 20201005, end: 20201005
  24. IVABRADINE [Concomitant]
     Active Substance: IVABRADINE
     Indication: Cardiac failure
     Dosage: 2.5 MG, BID
     Route: 065
     Dates: start: 20201004
  25. METHYLPREDNISOLONE SODIUM SUCCINATE [Concomitant]
     Active Substance: METHYLPREDNISOLONE SODIUM SUCCINATE
     Indication: Gout
     Dosage: 20 MG, QD
     Route: 065
     Dates: start: 20201004, end: 20201004
  26. SODIUM BICARBONATE [Concomitant]
     Active Substance: SODIUM BICARBONATE
     Indication: Gout
     Dosage: 0.5 G, TID
     Route: 065
     Dates: start: 20201005
  27. FEBUXOSTAT [Concomitant]
     Active Substance: FEBUXOSTAT
     Indication: Gout
     Dosage: 40 MG, QD
     Route: 065
     Dates: start: 20201005

REACTIONS (6)
  - Coronary artery occlusion [Recovering/Resolving]
  - Acute myocardial infarction [Recovering/Resolving]
  - Dyspepsia [Recovering/Resolving]
  - Chest pain [Recovering/Resolving]
  - Hyperhidrosis [Recovering/Resolving]
  - Tachypnoea [Recovering/Resolving]

NARRATIVE: CASE EVENT DATE: 20200930
